FAERS Safety Report 20722846 (Version 2)
Quarter: 2022Q2

REPORT INFORMATION
  Report Type: Report from Study
  Country: US (occurrence: US)
  Receive Date: 20220419
  Receipt Date: 20220509
  Transmission Date: 20220720
  Serious: No
  Sender: FDA-Public Use
  Company Number: US-Ipsen Biopharmaceuticals, Inc.-2022-10395

PATIENT
  Age: 69 Year
  Sex: Male
  Weight: 76.2 kg

DRUGS (1)
  1. DYSPORT [Suspect]
     Active Substance: ABOBOTULINUMTOXINA
     Indication: Hemiplegia
     Dosage: 1500 IU
     Route: 030
     Dates: start: 20211117, end: 20211117

REACTIONS (3)
  - Bedridden [Unknown]
  - Gait inability [Unknown]
  - Asthenia [Recovered/Resolved]

NARRATIVE: CASE EVENT DATE: 20211117
